FAERS Safety Report 8110645-3 (Version None)
Quarter: 2012Q1

REPORT INFORMATION
  Report Type: 
  Country: None (occurrence: None)
  Receive Date: 20120131
  Receipt Date: 20120131
  Transmission Date: 20120608
  Serious: Yes (Death)
  Sender: FDA-Public Use
  Company Number: None

PATIENT
  Age: 59 Year
  Sex: Female

DRUGS (1)
  1. SYMBICORT [Suspect]
     Dosage: 2 PUFFS TWICE DAILY

REACTIONS (4)
  - PRODUCT QUALITY ISSUE [None]
  - BLOOD URINE PRESENT [None]
  - PULMONARY OEDEMA [None]
  - INCORRECT DOSE ADMINISTERED [None]
